FAERS Safety Report 8445842-0 (Version None)
Quarter: 2012Q2

REPORT INFORMATION
  Report Type: 
  Country: None (occurrence: None)
  Receive Date: 20120323
  Receipt Date: 20110519
  Transmission Date: 20120825
  Serious: Yes (Hospitalization)
  Sender: FDA-Public Use
  Company Number: 163-21880-11052605

PATIENT
  Age: 62 Year
  Sex: Female
  Weight: 50.8029 kg

DRUGS (12)
  1. VITAMIN B12 [Concomitant]
  2. VALTREX [Concomitant]
  3. AMBIEN [Concomitant]
  4. OCUVITE (OCUVITE) [Concomitant]
  5. PRILOSEC [Concomitant]
  6. XANAX [Concomitant]
  7. OSCAL (CALCIUM CARBONATE) [Concomitant]
  8. ZOLOFT [Concomitant]
  9. LENALIDOMIDE [Suspect]
     Indication: MULTIPLE MYELOMA
     Dosage: 25 MD, QD FOR 21 DAYS, PO, 15 MG, QD FOR 2 WEEKS ON AND 2 WEEK SOFF, PO
     Route: 048
     Dates: start: 20110501
  10. LENALIDOMIDE [Suspect]
     Indication: MULTIPLE MYELOMA
     Dosage: 25 MD, QD FOR 21 DAYS, PO, 15 MG, QD FOR 2 WEEKS ON AND 2 WEEK SOFF, PO
     Route: 048
     Dates: start: 20110308
  11. DEX (DEXTROMETHORPHAN HYDROBROMIDE) [Concomitant]
  12. HYDROCODONE BITARTRATE [Concomitant]

REACTIONS (1)
  - RENAL FAILURE ACUTE [None]
